FAERS Safety Report 5669465-1 (Version None)
Quarter: 2008Q1

REPORT INFORMATION
  Report Type: 
  Country: None (occurrence: None)
  Receive Date: 20080317
  Receipt Date: 20080312
  Transmission Date: 20080703
  Serious: Yes (Other)
  Sender: FDA-Public Use
  Company Number: B0512597A

PATIENT
  Age: 45 Year
  Sex: Male

DRUGS (1)
  1. AUGMENTIN '125' [Suspect]
     Indication: URINARY TRACT INFECTION BACTERIAL
     Route: 042
     Dates: start: 20080101

REACTIONS (3)
  - ANGIOEDEMA [None]
  - DYSPHONIA [None]
  - PRURITUS ALLERGIC [None]
